FAERS Safety Report 11101612 (Version 2)
Quarter: 2015Q3

REPORT INFORMATION
  Report Type: Spontaneous
  Country: FR (occurrence: FR)
  Receive Date: 20150508
  Receipt Date: 20150825
  Transmission Date: 20151125
  Serious: Yes (Other)
  Sender: FDA-Public Use
  Company Number: FR-TAKEDA-2015TUS006166

PATIENT
  Age: 49 Year
  Sex: Female

DRUGS (1)
  1. ENTYVIO [Suspect]
     Active Substance: VEDOLIZUMAB
     Indication: CROHN^S DISEASE
     Dosage: 300 MG, UNK
     Route: 065
     Dates: start: 201501

REACTIONS (2)
  - Affect lability [Recovering/Resolving]
  - Suicide attempt [Recovering/Resolving]

NARRATIVE: CASE EVENT DATE: 201501
